FAERS Safety Report 4470523-8 (Version None)
Quarter: 2004Q4

REPORT INFORMATION
  Report Type: 
  Country: None (occurrence: None)
  Receive Date: 20041005
  Receipt Date: 20041005
  Transmission Date: 20050328
  Serious: Yes (Hospitalization)
  Sender: FDA-Public Use
  Company Number: None

PATIENT
  Sex: Male

DRUGS (13)
  1. GATIFLOXACIN [Suspect]
     Dosage: 400 MG DAILY ORAL
     Route: 048
     Dates: start: 20040417, end: 20040419
  2. ALBUTEROL [Concomitant]
  3. AZITHROMYCIN [Concomitant]
  4. CAPTOPRIL [Concomitant]
  5. CETRIAXONE [Concomitant]
  6. CODEINE/GUAFENESIN [Concomitant]
  7. DIGOXIN [Concomitant]
  8. DOCUSATE [Concomitant]
  9. FUROSEMIDE [Concomitant]
  10. IPRATROPIUM BROMIDE [Concomitant]
  11. RANITIDINE [Concomitant]
  12. SENNA [Concomitant]
  13. WARFARIN SODIUM [Concomitant]

REACTIONS (2)
  - CHEST PAIN [None]
  - HYPOGLYCAEMIA [None]
